FAERS Safety Report 7677908-7 (Version None)
Quarter: 2011Q3

REPORT INFORMATION
  Report Type: 
  Country: None (occurrence: None)
  Receive Date: 20110811
  Receipt Date: 20110803
  Transmission Date: 20111222
  Serious: Yes (Congenital Anomaly)
  Sender: FDA-Public Use
  Company Number: FR-MERCK-1108FRA00027B1

PATIENT
  Age: 1 Day
  Sex: Male
  Weight: 3 kg

DRUGS (7)
  1. SITAGLIPTIN PHOSPHATE [Suspect]
     Route: 064
     Dates: start: 20100727, end: 20101216
  2. METFORMIN HCL [Suspect]
     Route: 064
     Dates: start: 20100727, end: 20101216
  3. COZAAR [Suspect]
     Route: 064
     Dates: start: 20100727, end: 20101216
  4. ROSUVASTATIN CALCIUM [Suspect]
     Route: 064
     Dates: start: 20100727, end: 20101216
  5. DULOXETINE HYDROCHLORIDE [Suspect]
     Route: 064
     Dates: start: 20101216, end: 20110328
  6. DULOXETIME HYDROCHLORIDE [Suspect]
     Route: 064
     Dates: start: 20100727, end: 20101216
  7. LEVOTHYROXINE SODIUM [Concomitant]
     Route: 064

REACTIONS (3)
  - POLYDACTYLY [None]
  - PREMATURE BABY [None]
  - ANOMALY OF EXTERNAL EAR CONGENITAL [None]
